FAERS Safety Report 8971133 (Version 2)
Quarter: 2013Q1

REPORT INFORMATION
  Report Type: Spontaneous
  Country: US (occurrence: US)
  Receive Date: 20121218
  Receipt Date: 20130201
  Transmission Date: 20140127
  Serious: Yes (Other)
  Sender: FDA-Public Use
  Company Number: PHEH2012US024697

PATIENT
  Sex: Female
  Weight: 2.72 kg

DRUGS (1)
  1. GILENYA [Suspect]
     Indication: MULTIPLE SCLEROSIS
     Dosage: 0.5 MG, UNK
     Route: 064

REACTIONS (3)
  - Inguinal hernia [Unknown]
  - Heart rate increased [Unknown]
  - Foetal exposure during pregnancy [Unknown]
